FAERS Safety Report 23591132 (Version 1)
Quarter: 2024Q1

REPORT INFORMATION
  Report Type: Spontaneous
  Country: US (occurrence: None)
  Receive Date: 20240301
  Receipt Date: 20240301
  Transmission Date: 20240410
  Serious: No
  Sender: FDA-Public Use
  Company Number: None

PATIENT
  Age: 37 Year
  Sex: Male
  Weight: 81 kg

DRUGS (1)
  1. CEFTRIAXONE SODIUM [Suspect]
     Active Substance: CEFTRIAXONE SODIUM
     Dosage: FREQUENCY : ONCE;?
     Route: 030
     Dates: start: 20240204

REACTIONS (2)
  - Chlamydia test positive [None]
  - Urinary tract infection bacterial [None]

NARRATIVE: CASE EVENT DATE: 20240204
